FAERS Safety Report 5285149-6 (Version None)
Quarter: 2007Q1

REPORT INFORMATION
  Report Type: 
  Country: None (occurrence: None)
  Receive Date: 20070328
  Receipt Date: 20070312
  Transmission Date: 20070707
  Serious: Yes (Hospitalization)
  Sender: FDA-Public Use
  Company Number: 2007AD000026

PATIENT
  Sex: Female

DRUGS (7)
  1. CEPHALEXIN [Suspect]
     Indication: URINARY TRACT INFECTION
     Dosage: 500 MG; PO
     Route: 048
     Dates: start: 20070218, end: 20070219
  2. CEFACLOR [Concomitant]
  3. CHLORPHENIRAMINE MALEATE [Concomitant]
  4. CODEINE [Concomitant]
  5. PARACETAMOL [Concomitant]
  6. RANITIDINE [Concomitant]
  7. CYCLIZINE [Concomitant]

REACTIONS (3)
  - DRUG EXPOSURE DURING PREGNANCY [None]
  - ORAL MUCOSAL BLISTERING [None]
  - STEVENS-JOHNSON SYNDROME [None]
